FAERS Safety Report 9677528 (Version 2)
Quarter: 2013Q4

REPORT INFORMATION
  Report Type: Report from Study
  Country: BD (occurrence: BD)
  Receive Date: 20131108
  Receipt Date: 20131108
  Transmission Date: 20140711
  Serious: Yes (Death, Other)
  Sender: FDA-Public Use
  Company Number: PHHY2013BD125880

PATIENT
  Age: 82 Year
  Sex: Female

DRUGS (2)
  1. ACLASTA [Suspect]
     Indication: OSTEOPOROSIS
     Dosage: ONCE YEARLY
     Route: 042
     Dates: start: 20121215
  2. DICLOFENAC SODIUM [Concomitant]
     Indication: PAIN
     Dosage: UNK

REACTIONS (4)
  - Sudden death [Fatal]
  - Hemiplegia [Unknown]
  - Aphasia [Unknown]
  - Pyrexia [Unknown]
